FAERS Safety Report 7787858-3 (Version None)
Quarter: 2011Q3

REPORT INFORMATION
  Report Type: 
  Country: None (occurrence: None)
  Receive Date: 20110930
  Receipt Date: 20110921
  Transmission Date: 20111222
  Serious: No
  Sender: FDA-Public Use
  Company Number: US-BIOGENIDEC-2011BI017144

PATIENT
  Age: 41 Year
  Sex: Female

DRUGS (4)
  1. AVONEX [Concomitant]
     Indication: MULTIPLE SCLEROSIS
     Route: 030
     Dates: start: 19991126
  2. AVONEX [Concomitant]
     Route: 030
  3. TYSABRI [Suspect]
     Indication: MULTIPLE SCLEROSIS
     Route: 042
     Dates: start: 20090401
  4. PROTONIX [Concomitant]
     Indication: IMPAIRED GASTRIC EMPTYING

REACTIONS (9)
  - BRONCHITIS [None]
  - ARTHRALGIA [None]
  - PNEUMONIA PRIMARY ATYPICAL [None]
  - NASAL SEPTUM DEVIATION [None]
  - CHEST PAIN [None]
  - FATIGUE [None]
  - TENSION HEADACHE [None]
  - HEADACHE [None]
  - SINUSITIS [None]
